FAERS Safety Report 7011759-1 (Version None)
Quarter: 2010Q3

REPORT INFORMATION
  Report Type: 
  Country: None (occurrence: None)
  Receive Date: 20100923
  Receipt Date: 20090608
  Transmission Date: 20110219
  Serious: No
  Sender: FDA-Public Use
  Company Number: US-WYE-H09665609

PATIENT
  Sex: Female
  Weight: 63.56 kg

DRUGS (6)
  1. PREMARIN [Suspect]
     Indication: ATROPHIC VULVOVAGINITIS
     Dosage: 0.625 MG/DAILY FOR WEEK THEN 2 TIMES A WEEK
     Route: 067
     Dates: start: 20060101, end: 20080101
  2. THEOPHYLLINE [Concomitant]
  3. CALCIUM [Concomitant]
  4. ERGOCALCIFEROL [Concomitant]
  5. SEREVENT [Concomitant]
  6. SINGULAIR [Concomitant]

REACTIONS (4)
  - COITAL BLEEDING [None]
  - DRUG INEFFECTIVE [None]
  - DYSPAREUNIA [None]
  - DYSURIA [None]
